FAERS Safety Report 17673020 (Version 1)
Quarter: 2020Q2

REPORT INFORMATION
  Report Type: Other
  Country: US (occurrence: US)
  Receive Date: 20200415
  Receipt Date: 20200415
  Transmission Date: 20200713
  Serious: No
  Sender: FDA-Public Use
  Company Number: US-ALKERMES INC.-ALK-2019-005367

PATIENT
  Sex: Male

DRUGS (1)
  1. VIVITROL [Suspect]
     Active Substance: NALTREXONE
     Indication: PRODUCT USED FOR UNKNOWN INDICATION
     Dosage: 380 MG, QMO
     Route: 030

REACTIONS (10)
  - Injection site bruising [Unknown]
  - Needle issue [Recovered/Resolved]
  - Injection site pruritus [Unknown]
  - Coagulation factor VIII level abnormal [Unknown]
  - Injection site haemorrhage [Unknown]
  - Haematoma [Unknown]
  - Limb injury [Unknown]
  - Injection site reaction [Unknown]
  - Contusion [Not Recovered/Not Resolved]
  - Injection site pain [Not Recovered/Not Resolved]

NARRATIVE: CASE EVENT DATE: 20190613
